FAERS Safety Report 20745725 (Version 3)
Quarter: 2022Q2

REPORT INFORMATION
  Report Type: Report from Study
  Country: US (occurrence: US)
  Receive Date: 20220425
  Receipt Date: 20220530
  Transmission Date: 20220721
  Serious: Yes (Hospitalization)
  Sender: FDA-Public Use
  Company Number: US-ORPHANEU-2022001679

PATIENT

DRUGS (2)
  1. CARBAGLU [Suspect]
     Active Substance: CARGLUMIC ACID
     Indication: Hyperglycinaemia
     Dosage: 3 TABLETS VIA G-TUBE EVERY MORNING AND 2 TABLETS VIA G-TUBE EVERY EVENING
     Dates: start: 20200905
  2. CARBAGLU [Suspect]
     Active Substance: CARGLUMIC ACID
     Dosage: 600 MG EVERY MORNING AND 400 MG EVERY EVENING
     Dates: start: 20200905

REACTIONS (3)
  - Respiratory tract infection viral [Unknown]
  - Respiratory syncytial virus infection [Unknown]
  - Vomiting [Unknown]
